FAERS Safety Report 8222805-1 (Version None)
Quarter: 2012Q1

REPORT INFORMATION
  Report Type: 
  Country: None (occurrence: None)
  Receive Date: 20120320
  Receipt Date: 20120309
  Transmission Date: 20120608
  Serious: Yes (Life-Threatening, Other)
  Sender: FDA-Public Use
  Company Number: US-JNJFOC-20110810772

PATIENT
  Sex: Female
  Weight: 41 kg

DRUGS (19)
  1. MULTI-VITAMINS [Concomitant]
  2. FLUTICASONE FUROATE [Concomitant]
  3. REMICADE [Suspect]
     Route: 042
     Dates: start: 20090519
  4. LACTAID [Concomitant]
  5. ERYTHROMYCIN [Concomitant]
  6. CALCIUM CARBONATE [Concomitant]
  7. ANTIBIOTICS [Concomitant]
     Indication: INFLAMMATORY BOWEL DISEASE
  8. OMEPRAZOLE [Concomitant]
  9. NEOMYCIN [Concomitant]
  10. FERROUS SULFATE TAB [Concomitant]
  11. ALBUTEROL [Concomitant]
  12. REMICADE [Suspect]
     Indication: COLITIS ULCERATIVE
     Route: 042
     Dates: start: 20110621
  13. REMICADE [Suspect]
     Route: 042
     Dates: start: 20110510
  14. MESALAMINE [Concomitant]
     Route: 048
  15. SINGULAIR [Concomitant]
  16. GAS-X [Concomitant]
  17. PREDNISONE TAB [Concomitant]
  18. PROBIOTICS [Concomitant]
  19. VITAMIN D [Concomitant]

REACTIONS (1)
  - RESPIRATORY TRACT OEDEMA [None]
